FAERS Safety Report 21571613 (Version 2)
Quarter: 2025Q1

REPORT INFORMATION
  Report Type: Spontaneous
  Country: DE (occurrence: DE)
  Receive Date: 20221109
  Receipt Date: 20250110
  Transmission Date: 20250409
  Serious: Yes (Other)
  Sender: ALEXION PHARMACEUTICALS
  Company Number: 2022A362648

PATIENT
  Age: 61 Year

DRUGS (58)
  1. BUDESONIDE [Suspect]
     Active Substance: BUDESONIDE
     Indication: Acute graft versus host disease
     Route: 065
  2. BUDESONIDE [Suspect]
     Active Substance: BUDESONIDE
     Route: 065
  3. BUDESONIDE [Suspect]
     Active Substance: BUDESONIDE
     Route: 065
  4. BUDESONIDE [Suspect]
     Active Substance: BUDESONIDE
     Route: 065
  5. ALBENDAZOLE [Suspect]
     Active Substance: ALBENDAZOLE
     Indication: Product used for unknown indication
     Route: 065
  6. ALBENDAZOLE [Suspect]
     Active Substance: ALBENDAZOLE
     Route: 065
  7. ALBENDAZOLE [Suspect]
     Active Substance: ALBENDAZOLE
     Route: 065
  8. ALBENDAZOLE [Suspect]
     Active Substance: ALBENDAZOLE
     Route: 065
  9. GRAFALON [Suspect]
     Active Substance: LAPINE T-LYMPHOCYTE IMMUNE GLOBULIN
     Indication: Acute graft versus host disease
     Route: 065
  10. GRAFALON [Suspect]
     Active Substance: LAPINE T-LYMPHOCYTE IMMUNE GLOBULIN
     Route: 065
  11. GRAFALON [Suspect]
     Active Substance: LAPINE T-LYMPHOCYTE IMMUNE GLOBULIN
     Route: 065
  12. GRAFALON [Suspect]
     Active Substance: LAPINE T-LYMPHOCYTE IMMUNE GLOBULIN
     Route: 065
  13. CYCLOSPORINE [Suspect]
     Active Substance: CYCLOSPORINE
     Indication: Prophylaxis against graft versus host disease
     Route: 065
  14. CYCLOSPORINE [Suspect]
     Active Substance: CYCLOSPORINE
     Route: 065
  15. CYCLOSPORINE [Suspect]
     Active Substance: CYCLOSPORINE
     Route: 065
  16. CYCLOSPORINE [Suspect]
     Active Substance: CYCLOSPORINE
     Route: 065
  17. MYCOPHENOLATE MOFETIL [Suspect]
     Active Substance: MYCOPHENOLATE MOFETIL
     Indication: Prophylaxis against graft versus host disease
     Route: 065
  18. MYCOPHENOLATE MOFETIL [Suspect]
     Active Substance: MYCOPHENOLATE MOFETIL
     Indication: Prophylaxis against graft versus host disease
     Route: 065
  19. MYCOPHENOLATE MOFETIL [Suspect]
     Active Substance: MYCOPHENOLATE MOFETIL
     Route: 065
  20. MYCOPHENOLATE MOFETIL [Suspect]
     Active Substance: MYCOPHENOLATE MOFETIL
     Route: 065
  21. PREDNISOLONE [Suspect]
     Active Substance: PREDNISOLONE
     Indication: Acute graft versus host disease
     Dosage: 2 MILLIGRAM/KILOGRAM, QD
     Route: 065
  22. PREDNISOLONE [Suspect]
     Active Substance: PREDNISOLONE
     Dosage: 2 MILLIGRAM/KILOGRAM, QD
     Route: 065
  23. PREDNISOLONE [Suspect]
     Active Substance: PREDNISOLONE
     Dosage: 1.5 MILLIGRAM/KILOGRAM, QD
     Route: 065
  24. PREDNISOLONE [Suspect]
     Active Substance: PREDNISOLONE
     Dosage: 1.5 MILLIGRAM/KILOGRAM, QD
     Route: 065
  25. PREDNISOLONE [Suspect]
     Active Substance: PREDNISOLONE
     Dosage: 1 MILLIGRAM/KILOGRAM, QD
     Route: 065
  26. PREDNISOLONE [Suspect]
     Active Substance: PREDNISOLONE
     Dosage: 1 MILLIGRAM/KILOGRAM, QD
     Route: 065
  27. PREDNISOLONE [Suspect]
     Active Substance: PREDNISOLONE
     Dosage: 1 MG/KG, QD
     Route: 065
  28. PREDNISOLONE [Suspect]
     Active Substance: PREDNISOLONE
     Dosage: 1 MG/KG, QD
     Route: 065
  29. PREDNISOLONE [Suspect]
     Active Substance: PREDNISOLONE
     Dosage: 2 MG/KG, QD
     Route: 065
  30. PREDNISOLONE [Suspect]
     Active Substance: PREDNISOLONE
     Dosage: 2 MG/KG, QD
     Route: 065
  31. PREDNISOLONE [Suspect]
     Active Substance: PREDNISOLONE
     Dosage: 1.5 MG/KG, QD
     Route: 065
  32. PREDNISOLONE [Suspect]
     Active Substance: PREDNISOLONE
     Dosage: 1.5 MG/KG, QD
     Route: 065
  33. RUXOLITINIB [Suspect]
     Active Substance: RUXOLITINIB
     Indication: Graft versus host disease
     Dosage: 10 MILLIGRAM, BID
     Route: 065
  34. RUXOLITINIB [Suspect]
     Active Substance: RUXOLITINIB
     Dosage: 10 MILLIGRAM, BID
     Route: 065
  35. RUXOLITINIB [Suspect]
     Active Substance: RUXOLITINIB
     Dosage: 10 MG, BID
     Route: 065
  36. RUXOLITINIB [Suspect]
     Active Substance: RUXOLITINIB
     Dosage: 10 MG, BID
     Route: 065
  37. TACROLIMUS [Suspect]
     Active Substance: TACROLIMUS
     Indication: Product used for unknown indication
     Route: 065
  38. TACROLIMUS [Suspect]
     Active Substance: TACROLIMUS
     Route: 065
  39. TACROLIMUS [Suspect]
     Active Substance: TACROLIMUS
     Route: 065
  40. TACROLIMUS [Suspect]
     Active Substance: TACROLIMUS
     Route: 065
  41. URSODIOL [Suspect]
     Active Substance: URSODIOL
     Indication: Product used for unknown indication
     Route: 065
  42. URSODIOL [Suspect]
     Active Substance: URSODIOL
     Route: 065
  43. URSODIOL [Suspect]
     Active Substance: URSODIOL
     Route: 065
  44. URSODIOL [Suspect]
     Active Substance: URSODIOL
     Route: 065
  45. PULMICORT TURBUHALER [Suspect]
     Active Substance: BUDESONIDE
     Indication: Acute graft versus host disease
     Route: 065
  46. PULMICORT TURBUHALER [Suspect]
     Active Substance: BUDESONIDE
     Route: 065
  47. PULMICORT TURBUHALER [Suspect]
     Active Substance: BUDESONIDE
     Route: 065
  48. PULMICORT TURBUHALER [Suspect]
     Active Substance: BUDESONIDE
     Route: 065
  49. CYCLOSPORINE [Suspect]
     Active Substance: CYCLOSPORINE
     Indication: Prophylaxis against graft versus host disease
     Route: 065
  50. CYCLOSPORINE [Suspect]
     Active Substance: CYCLOSPORINE
     Route: 065
  51. CYCLOSPORINE [Suspect]
     Active Substance: CYCLOSPORINE
     Route: 065
  52. CYCLOSPORINE [Suspect]
     Active Substance: CYCLOSPORINE
     Route: 065
  53. PREDNISOLONE [Suspect]
     Active Substance: PREDNISOLONE
     Indication: Acute graft versus host disease
     Dosage: 1 MG/KG, QD
     Route: 065
  54. PREDNISOLONE [Suspect]
     Active Substance: PREDNISOLONE
     Dosage: 1 MG/KG, QD
     Route: 065
  55. PREDNISOLONE [Suspect]
     Active Substance: PREDNISOLONE
     Dosage: 2 MG/KG, QD
     Route: 065
  56. PREDNISOLONE [Suspect]
     Active Substance: PREDNISOLONE
     Dosage: 2 MG/KG, QD
     Route: 065
  57. PREDNISOLONE [Suspect]
     Active Substance: PREDNISOLONE
     Dosage: 1.5 MG/KG, QD
     Route: 065
  58. PREDNISOLONE [Suspect]
     Active Substance: PREDNISOLONE
     Dosage: 1.5 MG/KG, QD
     Route: 065

REACTIONS (16)
  - Hepatitis toxic [Unknown]
  - Septic shock [Unknown]
  - Vanishing bile duct syndrome [Unknown]
  - Acute graft versus host disease [Recovering/Resolving]
  - Hepatorenal syndrome [Unknown]
  - Enterococcal sepsis [Unknown]
  - Neutropenia [Unknown]
  - Toxicity to various agents [Unknown]
  - Anaphylactic reaction [Unknown]
  - Pruritus [Unknown]
  - Blood bilirubin increased [Not Recovered/Not Resolved]
  - Iron overload [Unknown]
  - Haemosiderosis [Unknown]
  - Decreased appetite [Unknown]
  - Transaminases increased [Unknown]
  - Therapy non-responder [Unknown]
